FAERS Safety Report 20983627 (Version 1)
Quarter: 2022Q2

REPORT INFORMATION
  Report Type: Report from Study
  Country: IT (occurrence: None)
  Receive Date: 20220620
  Receipt Date: 20220620
  Transmission Date: 20220721
  Serious: Yes (Hospitalization)
  Sender: FDA-Public Use
  Company Number: IT-ROCHE-2900106

PATIENT
  Age: 62 Year
  Sex: Female
  Weight: 78 kg

DRUGS (15)
  1. CISPLATIN [Suspect]
     Active Substance: CISPLATIN
     Indication: Non-small cell lung cancer
     Dosage: 75 MG/MQ?DATE OF LAST DOSE PRIOR TO ADVERSE EVENT: 22/SEP/2021
     Route: 042
     Dates: start: 20210719
  2. PEMBROLIZUMAB [Suspect]
     Active Substance: PEMBROLIZUMAB
     Indication: Non-small cell lung cancer
     Dosage: DATE OF LAST DOSE PRIOR TO ADVERSE EVENT: 03/NOV/2021
     Route: 042
     Dates: start: 20210719
  3. PEMETREXED [Suspect]
     Active Substance: PEMETREXED
     Indication: Non-small cell lung cancer
     Dosage: 500 MG/MQ?DATE OF LAST DOSE PRIOR TO ADVERSE EVENT: 03/NOV/2021
     Route: 042
     Dates: start: 20210719
  4. PRALSETINIB [Suspect]
     Active Substance: PRALSETINIB
     Indication: Non-small cell lung cancer
     Route: 048
  5. XANAX [Concomitant]
     Active Substance: ALPRAZOLAM
     Dates: start: 20210615, end: 20210813
  6. DECADRON [Concomitant]
     Active Substance: DEXAMETHASONE
     Dates: start: 20210721
  7. DECADRON [Concomitant]
     Active Substance: DEXAMETHASONE
     Dates: start: 20210901
  8. PANTOPRAZOLE SODIUM [Concomitant]
     Active Substance: PANTOPRAZOLE SODIUM
     Dosage: 20 MG/DIE
     Dates: start: 20210708
  9. PREGABALIN [Concomitant]
     Active Substance: PREGABALIN
     Dosage: 75 UG/DIE
     Dates: start: 20210708
  10. FENTANYL CITRATE [Concomitant]
     Active Substance: FENTANYL CITRATE
     Dates: start: 20210708
  11. DOBETIN [Concomitant]
     Dosage: 1000 MICROGRAM/MONTH
     Dates: start: 20210712
  12. FOLIC ACID [Concomitant]
     Active Substance: FOLIC ACID
     Dosage: 400 UG/DIE
     Dates: start: 20210712
  13. ARIXTRA [Concomitant]
     Active Substance: FONDAPARINUX SODIUM
     Dosage: 7.5 MG/DIE
     Dates: start: 20210824
  14. CHOLECALCIFEROL [Concomitant]
     Active Substance: CHOLECALCIFEROL
     Dosage: 32 GTT/WEEK
  15. ZOMETA [Concomitant]
     Active Substance: ZOLEDRONIC ACID
     Dates: start: 20210913

REACTIONS (2)
  - Pulmonary embolism [Recovered/Resolved]
  - Intestinal obstruction [Recovered/Resolved]

NARRATIVE: CASE EVENT DATE: 20210824
